FAERS Safety Report 5235382-4 (Version None)
Quarter: 2007Q1

REPORT INFORMATION
  Report Type: 
  Country: None (occurrence: None)
  Receive Date: 20070208
  Receipt Date: 20070208
  Transmission Date: 20070707
  Serious: Yes (Hospitalization, Other)
  Sender: FDA-Public Use
  Company Number: None

PATIENT
  Age: 42 Year
  Sex: Female
  Weight: 65.7716 kg

DRUGS (2)
  1. ABILIFY [Suspect]
     Indication: BIPOLAR DISORDER
     Dosage: 1 IN THE MORNING PO
     Route: 048
     Dates: start: 20050115, end: 20050315
  2. ZYPREXA [Suspect]
     Indication: BIPOLAR DISORDER
     Dosage: 3 3 TIMES A DAY PO
     Route: 048
     Dates: start: 20050408, end: 20061004

REACTIONS (2)
  - CARDIAC FAILURE [None]
  - DIABETES MELLITUS [None]
